FAERS Safety Report 8298966-5 (Version None)
Quarter: 2012Q2

REPORT INFORMATION
  Report Type: 
  Country: None (occurrence: None)
  Receive Date: 20120419
  Receipt Date: 20120410
  Transmission Date: 20120825
  Serious: Yes (Hospitalization, Disabling, Other)
  Sender: FDA-Public Use
  Company Number: US-MERCK-1109USA03245

PATIENT
  Age: 69 Year
  Sex: Female

DRUGS (3)
  1. FOSAMAX [Suspect]
     Indication: OSTEOPENIA
     Route: 048
     Dates: start: 19980309, end: 20080311
  2. FOSAMAX [Suspect]
     Route: 048
     Dates: start: 20081028, end: 20090721
  3. FOSAMAX [Suspect]
     Indication: PROPHYLAXIS
     Route: 048
     Dates: start: 20081028, end: 20090721

REACTIONS (13)
  - ARTHRITIS [None]
  - MOUTH CYST [None]
  - HYPERTENSION [None]
  - CYST [None]
  - HYPERCHOLESTEROLAEMIA [None]
  - GASTROOESOPHAGEAL REFLUX DISEASE [None]
  - DRUG HYPERSENSITIVITY [None]
  - FEMUR FRACTURE [None]
  - DENTAL CARIES [None]
  - DERMATITIS ALLERGIC [None]
  - ADVERSE EVENT [None]
  - FALL [None]
  - BACK PAIN [None]
